FAERS Safety Report 5331634-8 (Version None)
Quarter: 2007Q2

REPORT INFORMATION
  Report Type: 
  Country: None (occurrence: None)
  Receive Date: 20070522
  Receipt Date: 20070515
  Transmission Date: 20071010
  Serious: Yes (Other)
  Sender: FDA-Public Use
  Company Number: BR-PFIZER INC-2007039420

PATIENT
  Sex: Male

DRUGS (7)
  1. ZYRTEC [Suspect]
     Indication: HYPERSENSITIVITY
     Route: 048
     Dates: start: 20070417, end: 20070418
  2. ZYRTEC [Suspect]
     Route: 048
     Dates: start: 20070422, end: 20070422
  3. MYLANTA PLUS [Suspect]
     Indication: DYSPEPSIA
     Dosage: TEXT:ONE SPOON-FREQ:AS NEEDED
     Route: 048
  4. DRUG, UNSPECIFIED [Suspect]
     Dosage: TEXT:SACHET
  5. FENERGAN [Suspect]
     Route: 051
  6. DRUG, UNSPECIFIED [Suspect]
     Indication: ANTIALLERGIC THERAPY
  7. POLARAMINE [Suspect]
     Indication: HYPERSENSITIVITY
     Route: 048

REACTIONS (4)
  - CONDITION AGGRAVATED [None]
  - EYE SWELLING [None]
  - OEDEMA PERIPHERAL [None]
  - RASH MACULAR [None]
